FAERS Safety Report 9322566 (Version 1)
Quarter: 2013Q2

REPORT INFORMATION
  Report Type: Report from Study
  Country: FR (occurrence: FR)
  Receive Date: 20130531
  Receipt Date: 20130531
  Transmission Date: 20140414
  Serious: Yes (Hospitalization)
  Sender: FDA-Public Use
  Company Number: FR-PFIZER INC-2013163709

PATIENT
  Age: 82 Year
  Sex: Male
  Weight: 80 kg

DRUGS (2)
  1. TEMSIROLIMUS [Suspect]
     Indication: MANTLE CELL LYMPHOMA
     Dosage: 175 MG, WEEKLY
     Dates: start: 20110228, end: 20110228
  2. TEMSIROLIMUS [Suspect]
     Dosage: 75 MG, WEEKLY
     Dates: start: 20110310, end: 20110317

REACTIONS (3)
  - Lung infection [Recovered/Resolved]
  - Thrombocytopenia [Recovered/Resolved]
  - Dry skin [Unknown]
